FAERS Safety Report 16169969 (Version 2)
Quarter: 2020Q4

REPORT INFORMATION
  Report Type: Report from Study
  Country: GT (occurrence: GT)
  Receive Date: 20190408
  Receipt Date: 20201204
  Transmission Date: 20210113
  Serious: Yes (Hospitalization, Other)
  Sender: FDA-Public Use
  Company Number: GT-SA-2019SA092906

PATIENT

DRUGS (1)
  1. INSULIN GLARGINE [Suspect]
     Active Substance: INSULIN GLARGINE
     Indication: DIABETES MELLITUS
     Dosage: 16 IU, QD
     Route: 058
     Dates: start: 2016

REACTIONS (10)
  - Peripheral swelling [Recovering/Resolving]
  - Depression [Recovering/Resolving]
  - Balance disorder [Recovering/Resolving]
  - Hypertension [Recovering/Resolving]
  - Hypoacusis [Recovering/Resolving]
  - Diabetic neuropathy [Recovering/Resolving]
  - Visual impairment [Recovering/Resolving]
  - Tuberculosis [Recovered/Resolved]
  - Weight decreased [Recovered/Resolved]
  - Gait disturbance [Recovering/Resolving]

NARRATIVE: CASE EVENT DATE: 2018
